FAERS Safety Report 13424251 (Version 2)
Quarter: 2017Q2

REPORT INFORMATION
  Report Type: Spontaneous
  Country: US (occurrence: US)
  Receive Date: 20170410
  Receipt Date: 20170424
  Transmission Date: 20170830
  Serious: Yes (Other)
  Sender: FDA-Public Use
  Company Number: US-PFIZER INC-2017150472

PATIENT
  Age: 68 Year
  Sex: Male

DRUGS (1)
  1. INFLIXIMAB [Suspect]
     Active Substance: INFLIXIMAB
     Indication: OESOPHAGITIS
     Dosage: 3 MG/KG, TOTAL OF 210 MG/ TREATMENT
     Route: 042

REACTIONS (2)
  - Optic neuropathy [Not Recovered/Not Resolved]
  - Optic neuritis [Not Recovered/Not Resolved]
